FAERS Safety Report 9236746 (Version 1)
Quarter: 2013Q2

REPORT INFORMATION
  Report Type: Spontaneous
  Country: JP (occurrence: JP)
  Receive Date: 20130417
  Receipt Date: 20130417
  Transmission Date: 20140414
  Serious: Yes (Hospitalization)
  Sender: FDA-Public Use
  Company Number: JP-GLAXOSMITHKLINE-B0883308A

PATIENT
  Age: 67 Year
  Sex: Female

DRUGS (1)
  1. PAXIL [Suspect]
     Indication: DEPRESSIVE SYMPTOM
     Route: 048
     Dates: start: 20130405, end: 20130407

REACTIONS (3)
  - Pituitary tumour [Unknown]
  - Hyponatraemia [Recovering/Resolving]
  - Nausea [Recovered/Resolved]
